FAERS Safety Report 15940330 (Version 3)
Quarter: 2019Q2

REPORT INFORMATION
  Report Type: Spontaneous
  Country: US (occurrence: US)
  Receive Date: 20190208
  Receipt Date: 20190410
  Transmission Date: 20190711
  Serious: Yes (Other)
  Sender: FDA-Public Use
  Company Number: US-ASTRAZENECA-2019SE12019

PATIENT
  Sex: Female
  Weight: 63.5 kg

DRUGS (10)
  1. EXEMESTANE. [Concomitant]
     Active Substance: EXEMESTANE
  2. NEXIUM [Suspect]
     Active Substance: ESOMEPRAZOLE MAGNESIUM
     Route: 048
     Dates: start: 1992
  3. ANASTROZOLE. [Concomitant]
     Active Substance: ANASTROZOLE
  4. PRILOSEC [Suspect]
     Active Substance: OMEPRAZOLE MAGNESIUM
     Route: 048
     Dates: start: 1992
  5. IBUPROFEN. [Concomitant]
     Active Substance: IBUPROFEN
  6. FLUCONAZOLE. [Concomitant]
     Active Substance: FLUCONAZOLE
  7. ZOLPIDEM [Concomitant]
     Active Substance: ZOLPIDEM\ZOLPIDEM TARTRATE
  8. COZAAR [Concomitant]
     Active Substance: LOSARTAN POTASSIUM
  9. AMOXICILLIN. [Concomitant]
     Active Substance: AMOXICILLIN
  10. LIDOCAINE. [Concomitant]
     Active Substance: LIDOCAINE

REACTIONS (3)
  - Chronic kidney disease [Not Recovered/Not Resolved]
  - End stage renal disease [Unknown]
  - Renal failure [Unknown]
